FAERS Safety Report 12737803 (Version 1)
Quarter: 2016Q3

REPORT INFORMATION
  Report Type: Spontaneous
  Country: HR (occurrence: HR)
  Receive Date: 20160913
  Receipt Date: 20160913
  Transmission Date: 20161109
  Serious: Yes (Other)
  Sender: FDA-Public Use
  Company Number: HR-JNJFOC-20160907567

PATIENT
  Sex: Female

DRUGS (15)
  1. SORTIS [Concomitant]
     Active Substance: ATORVASTATIN
     Route: 065
  2. CARDIOPIRIN [Concomitant]
     Active Substance: ASPIRIN
     Route: 065
  3. ISMN [Concomitant]
     Active Substance: ISOSORBIDE MONONITRATE
     Route: 065
  4. XARELTO [Suspect]
     Active Substance: RIVAROXABAN
     Indication: DEEP VEIN THROMBOSIS
     Route: 048
     Dates: start: 201607
  5. ALPRAZOLAM. [Concomitant]
     Active Substance: ALPRAZOLAM
     Route: 065
  6. CYMBALTA [Concomitant]
     Active Substance: DULOXETINE HYDROCHLORIDE
     Route: 065
  7. PERINDOPRIL ARG/AMLODIPINE FISHER [Concomitant]
     Route: 065
  8. CALCIUM W/VITAMIN D3 [Concomitant]
     Active Substance: CALCIUM\CHOLECALCIFEROL
     Route: 065
  9. PANTOPRAZOLE [Concomitant]
     Active Substance: PANTOPRAZOLE SODIUM
     Route: 065
  10. XARELTO [Suspect]
     Active Substance: RIVAROXABAN
     Indication: EMBOLISM VENOUS
     Route: 048
     Dates: start: 201607
  11. IMURAN [Concomitant]
     Active Substance: AZATHIOPRINE
     Route: 065
  12. URAPIDIL [Concomitant]
     Active Substance: URAPIDIL
     Route: 065
  13. QUENSYL [Concomitant]
     Active Substance: HYDROXYCHLOROQUINE
     Route: 065
  14. MEDROL [Concomitant]
     Active Substance: METHYLPREDNISOLONE
     Route: 065
  15. TERTENSIF [Concomitant]
     Route: 065

REACTIONS (1)
  - Acute myocardial infarction [Unknown]

NARRATIVE: CASE EVENT DATE: 20160902
